FAERS Safety Report 4902527-2 (Version None)
Quarter: 2006Q1

REPORT INFORMATION
  Report Type: 
  Country: None (occurrence: None)
  Receive Date: 20060202
  Receipt Date: 20060124
  Transmission Date: 20060701
  Serious: Yes (Hospitalization)
  Sender: FDA-Public Use
  Company Number: 2006-137793-NL

PATIENT
  Age: 47 Year
  Sex: Female

DRUGS (1)
  1. MIRTAZAPINE [Suspect]
     Indication: DEPRESSION
     Dosage: 30 MG
     Route: 048
     Dates: start: 20050201, end: 20060125

REACTIONS (4)
  - AGEUSIA [None]
  - DEPRESSIVE SYMPTOM [None]
  - SUICIDE ATTEMPT [None]
  - THERAPEUTIC RESPONSE DECREASED [None]
